FAERS Safety Report 5372247-1 (Version None)
Quarter: 2007Q2

REPORT INFORMATION
  Report Type: 
  Country: None (occurrence: None)
  Receive Date: 20070615
  Receipt Date: 20061204
  Transmission Date: 20071010
  Serious: Yes (Other)
  Sender: FDA-Public Use
  Company Number: 200619862US

PATIENT
  Age: 66 Year
  Sex: Female

DRUGS (5)
  1. LANTUS [Suspect]
     Indication: DIABETES MELLITUS NON-INSULIN-DEPENDENT
     Dates: start: 19980101
  2. LANTUS [Suspect]
     Indication: DIABETES MELLITUS NON-INSULIN-DEPENDENT
     Dosage: 25-30 U
     Dates: start: 20061101
  3. SIMVASTATIN, EZETIMIBE (VYTORIN) [Concomitant]
  4. LISINOPRIL [Concomitant]
  5. MULTIVITAMIN [Concomitant]

REACTIONS (1)
  - HYPOGLYCAEMIA [None]
